FAERS Safety Report 9684620 (Version 1)
Quarter: 2013Q4

REPORT INFORMATION
  Report Type: Spontaneous
  Country: JP (occurrence: JP)
  Receive Date: 20131112
  Receipt Date: 20131112
  Transmission Date: 20140711
  Serious: Yes (Death)
  Sender: FDA-Public Use
  Company Number: JP-MALLINCKRODT-T201304810

PATIENT
  Age: 65 Year
  Sex: Male

DRUGS (11)
  1. METHADONE [Suspect]
     Indication: CANCER PAIN
     Dosage: UNK
     Route: 048
     Dates: start: 20130924, end: 20131002
  2. OXINORM                            /00045603/ [Concomitant]
     Dosage: 15 MG, PRN
     Route: 048
     Dates: start: 20130923
  3. ROZEREM [Concomitant]
     Dosage: 8 MG, UNK
     Route: 048
     Dates: start: 20130924, end: 20131001
  4. NAUZELIN [Concomitant]
     Dosage: 30 MG, UNK
     Route: 048
     Dates: start: 20130925, end: 20130925
  5. FENTOS [Concomitant]
     Dosage: 6 MG, UNK
     Route: 062
     Dates: start: 20130925, end: 20131003
  6. ROPION [Concomitant]
     Dosage: 50 MG, UNK
     Route: 042
     Dates: start: 20130706, end: 20130925
  7. ROPION [Concomitant]
     Dosage: 100 MG, UNK
     Route: 042
     Dates: start: 20130926, end: 20131003
  8. RINDERON                           /00008501/ [Concomitant]
     Dosage: 4 MG, UNK
     Route: 042
     Dates: start: 20130926, end: 20130930
  9. RINDERON                           /00008501/ [Concomitant]
     Dosage: 8 MG, UNK
     Route: 042
     Dates: start: 20131001, end: 20131003
  10. OXYFAST [Concomitant]
     Dosage: 100 MG, UNK
     Route: 042
     Dates: start: 20130929, end: 20131001
  11. OXYFAST [Concomitant]
     Dosage: 200 MG, UNK
     Route: 042
     Dates: start: 20131002, end: 20131003

REACTIONS (1)
  - Pancreatic carcinoma [Fatal]
